FAERS Safety Report 21086231 (Version 3)
Quarter: 2022Q3

REPORT INFORMATION
  Report Type: Spontaneous
  Country: US (occurrence: US)
  Receive Date: 20220715
  Receipt Date: 20220825
  Transmission Date: 20221027
  Serious: No
  Sender: FDA-Public Use
  Company Number: US-JNJFOC-20220724613

PATIENT
  Age: 76 Year
  Sex: Male

DRUGS (1)
  1. TYLENOL 8 HR ARTHRITIS PAIN [Suspect]
     Active Substance: ACETAMINOPHEN
     Indication: Arthritis
     Dosage: 2 CAPLET ONCE A DAY
     Route: 048
     Dates: start: 202206

REACTIONS (2)
  - Inappropriate schedule of product administration [Unknown]
  - Product label issue [Unknown]

NARRATIVE: CASE EVENT DATE: 20220601
